FAERS Safety Report 7235675-5 (Version None)
Quarter: 2011Q1

REPORT INFORMATION
  Report Type: 
  Country: None (occurrence: None)
  Receive Date: 20110120
  Receipt Date: 20110110
  Transmission Date: 20110831
  Serious: Yes (Death, Hospitalization, Other)
  Sender: FDA-Public Use
  Company Number: FR-ELI_LILLY_AND_COMPANY-FR201101002065

PATIENT
  Age: 49 Year
  Sex: Male

DRUGS (3)
  1. NEULASTA [Concomitant]
     Dosage: 6 MG, UNK
     Route: 058
  2. ALIMTA [Suspect]
     Indication: LUNG ADENOCARCINOMA METASTATIC
     Dosage: UNK, UNKNOWN
     Route: 042
     Dates: start: 20100702, end: 20100723
  3. CARBOPLATIN [Concomitant]
     Indication: LUNG ADENOCARCINOMA METASTATIC
     Dosage: UNK, UNKNOWN
     Route: 042
     Dates: start: 20100702, end: 20100723

REACTIONS (11)
  - BRONCHIAL OBSTRUCTION [None]
  - RENAL FAILURE ACUTE [None]
  - NEOPLASM MALIGNANT [None]
  - ALTERED STATE OF CONSCIOUSNESS [None]
  - DEHYDRATION [None]
  - URETERIC STENOSIS [None]
  - PYELOCALIECTASIS [None]
  - RETROPERITONEAL LYMPHADENOPATHY [None]
  - DEATH [None]
  - GENERAL PHYSICAL HEALTH DETERIORATION [None]
  - HYPOTONIC URINARY BLADDER [None]
